FAERS Safety Report 10296515 (Version 1)
Quarter: 2014Q3

REPORT INFORMATION
  Report Type: Spontaneous
  Country: US (occurrence: None)
  Receive Date: 20140708
  Receipt Date: 20140708
  Transmission Date: 20150326
  Serious: Yes (Life-Threatening, Hospitalization, Other)
  Sender: FDA-Public Use
  Company Number: None

PATIENT
  Age: 67 Year
  Sex: Female
  Weight: 108.86 kg

DRUGS (1)
  1. LEVOFLAXACIN 500MG DR. REDDY [Suspect]
     Active Substance: LEVOFLOXACIN
     Indication: RESPIRATORY DISORDER

REACTIONS (6)
  - Panic reaction [None]
  - Dyspnoea [None]
  - Choking [None]
  - Condition aggravated [None]
  - Fall [None]
  - Product quality issue [None]
